FAERS Safety Report 7759669-6 (Version None)
Quarter: 2011Q3

REPORT INFORMATION
  Report Type: 
  Country: None (occurrence: None)
  Receive Date: 20110919
  Receipt Date: 20110912
  Transmission Date: 20111222
  Serious: Yes (Hospitalization, Other)
  Sender: FDA-Public Use
  Company Number: JP-JNJFOC-20110810879

PATIENT
  Age: 87 Year
  Sex: Female

DRUGS (8)
  1. MOTILIUM [Concomitant]
     Route: 065
  2. MUCOSTA [Concomitant]
     Indication: GASTRITIS
     Route: 048
  3. LOXONIN [Concomitant]
     Indication: SPINAL OSTEOARTHRITIS
     Route: 065
  4. ZOLPIDEM [Concomitant]
     Indication: SLEEP DISORDER
     Route: 048
  5. AMLODIPINE [Concomitant]
     Indication: HYPERTENSION
     Route: 048
  6. MOTILIUM [Concomitant]
     Indication: PROPHYLAXIS OF NAUSEA AND VOMITING
     Route: 065
  7. TRAMADOL HYDROCHLORIDE/ACETAMINOPHEN [Suspect]
     Indication: SPINAL OSTEOARTHRITIS
     Dosage: ONCE A DAY
     Route: 048
  8. ASPIRIN [Concomitant]
     Indication: PROPHYLAXIS
     Route: 048

REACTIONS (3)
  - NAUSEA [None]
  - ILEUS [None]
  - VOMITING [None]
